FAERS Safety Report 7857296-3 (Version None)
Quarter: 2011Q4

REPORT INFORMATION
  Report Type: 
  Country: None (occurrence: None)
  Receive Date: 20111027
  Receipt Date: 20111018
  Transmission Date: 20120403
  Serious: No
  Sender: FDA-Public Use
  Company Number: US-BIOGENIDEC-2011BI028098

PATIENT
  Sex: Female

DRUGS (5)
  1. MEDICATION (NOS) [Concomitant]
     Indication: NAUSEA
  2. TYSABRI [Suspect]
     Indication: MULTIPLE SCLEROSIS
     Route: 042
     Dates: start: 20110201
  3. PROZAC [Concomitant]
     Indication: DEPRESSION
  4. AVONEX [Concomitant]
     Indication: MULTIPLE SCLEROSIS
     Route: 030
     Dates: start: 20090310
  5. MEDICATION (NOS) [Concomitant]
     Indication: DIZZINESS

REACTIONS (13)
  - DEPRESSION [None]
  - ADVERSE DRUG REACTION [None]
  - NAUSEA [None]
  - ANXIETY [None]
  - STRESS [None]
  - NECK PAIN [None]
  - DIZZINESS [None]
  - IMPAIRED DRIVING ABILITY [None]
  - ANAEMIA [None]
  - WEIGHT DECREASED [None]
  - TREMOR [None]
  - BACK PAIN [None]
  - DIZZINESS POSTURAL [None]
